FAERS Safety Report 6208700-8 (Version None)
Quarter: 2009Q2

REPORT INFORMATION
  Report Type: 
  Country: None (occurrence: None)
  Receive Date: 20090529
  Receipt Date: 20090518
  Transmission Date: 20091009
  Serious: Yes (Other)
  Sender: FDA-Public Use
  Company Number: FR-PFIZER INC-2009216844

PATIENT
  Age: 65 Year

DRUGS (1)
  1. SUNITINIB MALATE [Suspect]
     Indication: RENAL CELL CARCINOMA
     Dosage: 50 MG, DAILY, IN 6 WEEK CYCLES.

REACTIONS (4)
  - ASTHENIA [None]
  - BURSITIS [None]
  - DIARRHOEA [None]
  - VOMITING [None]
